FAERS Safety Report 14044294 (Version 1)
Quarter: 2017Q4

REPORT INFORMATION
  Report Type: Spontaneous
  Country: IT (occurrence: IT)
  Receive Date: 20171004
  Receipt Date: 20171004
  Transmission Date: 20180321
  Serious: No
  Sender: FDA-Public Use
  Company Number: IT-B. BRAUN MEDICAL INC.-2028760

PATIENT
  Age: 68 Year
  Sex: Female

DRUGS (2)
  1. ROCEPHIN [Suspect]
     Active Substance: CEFTRIAXONE SODIUM
     Route: 041
     Dates: start: 20160528, end: 20160528
  2. METRONIDAZOLE. [Suspect]
     Active Substance: METRONIDAZOLE
     Indication: GASTROENTERITIS
     Dates: start: 20160528, end: 20160528

REACTIONS (1)
  - Urticaria [Recovered/Resolved]
